FAERS Safety Report 9852349 (Version 1)
Quarter: 2014Q1

REPORT INFORMATION
  Report Type: Report from Study
  Country: GR (occurrence: GR)
  Receive Date: 20140129
  Receipt Date: 20140129
  Transmission Date: 20141002
  Serious: Yes (Death, Other)
  Sender: FDA-Public Use
  Company Number: GR-ASTELLAS-2014US000826

PATIENT
  Age: 67 Year
  Sex: Male

DRUGS (2)
  1. ERLOTINIB TABLET [Suspect]
     Indication: LUNG ADENOCARCINOMA
     Dosage: 150 MG (3 CYCLES), UID/QD
     Route: 048
     Dates: start: 20130619, end: 20131002
  2. ERLOTINIB TABLET [Suspect]
     Dosage: 100 MG (2 CYCLES), UID/QD
     Route: 065

REACTIONS (3)
  - Death [Fatal]
  - Performance status decreased [Unknown]
  - Gastrointestinal disorder [Unknown]
